FAERS Safety Report 25659160 (Version 1)
Quarter: 2025Q3

REPORT INFORMATION
  Report Type: Spontaneous
  Country: EU (occurrence: EU)
  Receive Date: 20250808
  Receipt Date: 20250808
  Transmission Date: 20251021
  Serious: Yes (Other)
  Sender: TEVA
  Company Number: None

PATIENT
  Age: 63 Year
  Sex: Female

DRUGS (2)
  1. AMOXICILLIN [Suspect]
     Active Substance: AMOXICILLIN
     Indication: Chronic obstructive pulmonary disease
     Dosage: 1 G X3/DAY
     Route: 048
     Dates: start: 20250227
  2. SOLUPRED [Concomitant]
     Indication: Chronic obstructive pulmonary disease
     Route: 048
     Dates: start: 20250227

REACTIONS (2)
  - Type I hypersensitivity [Recovered/Resolved]
  - Cross sensitivity reaction [Recovered/Resolved]

NARRATIVE: CASE EVENT DATE: 20250227
